FAERS Safety Report 7950578-6 (Version None)
Quarter: 2011Q4

REPORT INFORMATION
  Report Type: 
  Country: None (occurrence: None)
  Receive Date: 20111130
  Receipt Date: 20111121
  Transmission Date: 20120403
  Serious: Yes (Death)
  Sender: FDA-Public Use
  Company Number: JP-ALLERGAN-1115426US

PATIENT
  Age: 5 Year
  Sex: Male

DRUGS (1)
  1. BOTOX [Suspect]
     Indication: TORTICOLLIS
     Route: 030

REACTIONS (1)
  - DEATH [None]
